FAERS Safety Report 12914406 (Version 3)
Quarter: 2017Q1

REPORT INFORMATION
  Report Type: Report from Study
  Country: JP (occurrence: JP)
  Receive Date: 20161106
  Receipt Date: 20170303
  Transmission Date: 20170428
  Serious: Yes (Life-Threatening)
  Sender: FDA-Public Use
  Company Number: JP-ASTRAZENECA-2016SF15937

PATIENT
  Age: 7139 Day
  Sex: Male

DRUGS (26)
  1. PRODIF [Concomitant]
     Active Substance: FOSFLUCONAZOLE
     Route: 042
     Dates: start: 20150822
  2. PRODIF [Concomitant]
     Active Substance: FOSFLUCONAZOLE
     Route: 042
     Dates: start: 20150823
  3. ROCEPHIN [Suspect]
     Active Substance: CEFTRIAXONE SODIUM
     Route: 042
     Dates: start: 20150803, end: 20150806
  4. LANSOPRAZOLE. [Concomitant]
     Active Substance: LANSOPRAZOLE
     Route: 048
  5. SOLU-MEDROL [Concomitant]
     Active Substance: METHYLPREDNISOLONE SODIUM SUCCINATE
     Route: 042
     Dates: start: 20150802, end: 20150804
  6. VANCOMYCIN HYDROCHLORIDE. [Concomitant]
     Active Substance: VANCOMYCIN HYDROCHLORIDE
     Route: 041
     Dates: start: 20150807, end: 20150810
  7. ALBUMINAR [Concomitant]
     Active Substance: ALBUMIN HUMAN
     Dates: start: 20150820, end: 20150822
  8. PROPOFOL. [Concomitant]
     Active Substance: PROPOFOL
     Indication: STATUS EPILEPTICUS
     Route: 042
     Dates: start: 20150818, end: 20150821
  9. PROPOFOL. [Concomitant]
     Active Substance: PROPOFOL
     Indication: STATUS EPILEPTICUS
     Route: 042
     Dates: start: 20150803, end: 20150805
  10. ONEALFA [Concomitant]
     Active Substance: ALFACALCIDOL
     Route: 048
  11. PREDONINE [Concomitant]
     Active Substance: PREDNISOLONE
     Route: 048
     Dates: end: 20150802
  12. RECOMODULIN [Concomitant]
     Active Substance: THROMBOMODULIN ALFA
     Route: 041
     Dates: start: 20150823
  13. DORMICUM [Concomitant]
     Indication: STATUS EPILEPTICUS
     Dates: start: 20150821
  14. POLYGLOBIN [Concomitant]
     Active Substance: HUMAN IMMUNOGLOBULIN G
     Route: 042
     Dates: start: 20150824, end: 20150825
  15. MEROPEN [Suspect]
     Active Substance: MEROPENEM
     Indication: MENINGITIS BACTERIAL
     Route: 041
     Dates: start: 20150804, end: 20150824
  16. MYSTAN [Concomitant]
     Active Substance: CLOBAZAM
     Route: 048
  17. VANCOMYCIN HYDROCHLORIDE. [Concomitant]
     Active Substance: VANCOMYCIN HYDROCHLORIDE
     Route: 041
     Dates: start: 20150823, end: 20150825
  18. CEREGASRON [Concomitant]
     Active Substance: IRSOGLADINE MALEATE
     Route: 048
  19. BAKTAR [Concomitant]
     Active Substance: SULFAMETHOXAZOLE\TRIMETHOPRIM
     Route: 048
  20. PREDONINE [Concomitant]
     Active Substance: PREDNISOLONE
     Route: 048
     Dates: start: 20150805
  21. DORMICUM [Concomitant]
     Indication: STATUS EPILEPTICUS
     Dates: start: 20150806, end: 20150817
  22. MEROPEN [Suspect]
     Active Substance: MEROPENEM
     Indication: MENINGITIS BACTERIAL
     Route: 041
     Dates: start: 20150803, end: 20150803
  23. E KEPPRA [Concomitant]
     Active Substance: LEVETIRACETAM
     Route: 048
  24. VENOGLOBULIN [Concomitant]
     Active Substance: HUMAN IMMUNOGLOBULIN G
     Dates: start: 20150812, end: 20150816
  25. MEROPEN [Suspect]
     Active Substance: MEROPENEM
     Indication: MENINGITIS BACTERIAL
     Route: 041
     Dates: start: 20150825, end: 20150825
  26. LEXIN [Concomitant]
     Active Substance: CEPHALEXIN
     Route: 048

REACTIONS (2)
  - Candida sepsis [Not Recovered/Not Resolved]
  - Disseminated intravascular coagulation [Not Recovered/Not Resolved]

NARRATIVE: CASE EVENT DATE: 20150823
